FAERS Safety Report 19047291 (Version 2)
Quarter: 2021Q1

REPORT INFORMATION
  Report Type: Spontaneous
  Country: CN (occurrence: CN)
  Receive Date: 20210323
  Receipt Date: 20210325
  Transmission Date: 20210420
  Serious: Yes (Other)
  Sender: FDA-Public Use
  Company Number: CN-PFIZER INC-2021276832

PATIENT
  Age: 49 Year
  Sex: Female
  Weight: 42.5 kg

DRUGS (4)
  1. MEPEM [Suspect]
     Active Substance: MEROPENEM
     Indication: PNEUMONIA
     Dosage: 0.5 G, 4X/DAY
     Route: 041
     Dates: start: 20210226, end: 20210301
  2. PIPERACILLIN AND TAZOBACTAM [Concomitant]
     Active Substance: PIPERACILLIN SODIUM\TAZOBACTAM SODIUM
     Indication: ANTI-INFECTIVE THERAPY
     Dosage: UNK
     Dates: start: 20210303
  3. TIGECYCLINE. [Suspect]
     Active Substance: TIGECYCLINE
     Indication: LIVER ABSCESS
     Dosage: 50 MG, 2X/DAY
     Route: 041
     Dates: start: 20210301
  4. ZYVOX [Suspect]
     Active Substance: LINEZOLID
     Indication: PNEUMONIA
     Dosage: 0.6 G, 2X/DAY
     Route: 041
     Dates: start: 20210226, end: 20210301

REACTIONS (2)
  - Coagulation time prolonged [Unknown]
  - Therapeutic product effect incomplete [Unknown]

NARRATIVE: CASE EVENT DATE: 202103
